FAERS Safety Report 6270713-8 (Version None)
Quarter: 2009Q3

REPORT INFORMATION
  Report Type: 
  Country: None (occurrence: None)
  Receive Date: 20090716
  Receipt Date: 20090706
  Transmission Date: 20100115
  Serious: Yes (Death, Other)
  Sender: FDA-Public Use
  Company Number: GB-GENENTECH-286841

PATIENT

DRUGS (8)
  1. RITUXIMAB [Suspect]
     Indication: B-CELL LYMPHOMA
     Dosage: 375 MG/M2, UNK
     Route: 065
  2. METHOTREXATE [Suspect]
     Indication: B-CELL LYMPHOMA
     Dosage: 3000 MG/M2, UNK
     Route: 065
  3. CYTARABINE [Suspect]
     Indication: B-CELL LYMPHOMA
     Route: 065
  4. VINCRISTINE [Suspect]
     Indication: B-CELL LYMPHOMA
     Route: 065
  5. DOXORUBICIN HCL [Suspect]
     Indication: B-CELL LYMPHOMA
     Route: 065
  6. CYCLOPHOSPHAMIDE [Suspect]
     Indication: B-CELL LYMPHOMA
     Route: 065
  7. FOLINIC ACID [Suspect]
     Indication: B-CELL LYMPHOMA
     Route: 065
  8. PREDNISOLONE [Suspect]
     Indication: B-CELL LYMPHOMA
     Route: 065

REACTIONS (6)
  - DEATH [None]
  - DIARRHOEA [None]
  - FUNGAL INFECTION [None]
  - NEUTROPENIA [None]
  - STOMATITIS [None]
  - THROMBOCYTOPENIA [None]
